FAERS Safety Report 5021307-3 (Version None)
Quarter: 2006Q2

REPORT INFORMATION
  Report Type: 
  Country: None (occurrence: None)
  Receive Date: 20060608
  Receipt Date: 20060606
  Transmission Date: 20061013
  Serious: Yes (Other)
  Sender: FDA-Public Use
  Company Number: DE-GLAXOSMITHKLINE-D0049964A

PATIENT

DRUGS (1)
  1. WELLVONE [Suspect]
     Route: 048

REACTIONS (1)
  - LEUKOPENIA [None]
